FAERS Safety Report 8983397 (Version 2)
Quarter: 2013Q1

REPORT INFORMATION
  Report Type: Spontaneous
  Country: CA (occurrence: CA)
  Receive Date: 20121224
  Receipt Date: 20130124
  Transmission Date: 20140127
  Serious: Yes (Hospitalization)
  Sender: FDA-Public Use
  Company Number: CA-JNJFOC-20091007979

PATIENT
  Age: 67 None
  Sex: Female
  Weight: 86.4 kg

DRUGS (18)
  1. REMICADE [Suspect]
     Indication: RHEUMATOID ARTHRITIS
     Route: 042
  2. METHOTREXATE [Concomitant]
  3. XALATAN [Concomitant]
     Route: 047
  4. BRIMONIDINE [Concomitant]
     Route: 047
  5. COSOPT [Concomitant]
     Route: 047
  6. COVERSYL [Concomitant]
     Route: 048
  7. FOLIC ACID [Concomitant]
     Indication: TOXICITY TO VARIOUS AGENTS
     Route: 048
  8. PREMARIN [Concomitant]
     Route: 048
  9. NEXIUM [Concomitant]
     Indication: GASTROOESOPHAGEAL REFLUX DISEASE
     Route: 048
  10. CELEBREX [Concomitant]
     Indication: RHEUMATOID ARTHRITIS
     Route: 048
     Dates: start: 20061117
  11. ACTONEL [Concomitant]
     Indication: OSTEOPOROSIS
     Route: 048
     Dates: start: 20070101
  12. BUTALBITAL [Concomitant]
     Indication: HEADACHE
     Route: 048
     Dates: start: 20070111
  13. HYDRAZIDE [Concomitant]
     Indication: BLOOD PRESSURE INCREASED
     Route: 048
     Dates: start: 20070523
  14. BENADRYL [Concomitant]
     Indication: ERYTHEMA
     Route: 061
     Dates: start: 20071101
  15. REACTINE [Concomitant]
     Indication: LACRIMATION INCREASED
     Route: 048
     Dates: start: 20071201
  16. REACTINE [Concomitant]
     Indication: SNEEZING
     Route: 048
     Dates: start: 20071201
  17. PREDNISONE [Concomitant]
     Indication: RHEUMATOID ARTHRITIS
     Route: 048
     Dates: start: 20090807
  18. LUMIGAN [Concomitant]
     Dates: start: 200805

REACTIONS (2)
  - Osteoarthritis [Recovering/Resolving]
  - Knee arthroplasty [Unknown]
